FAERS Safety Report 8043710-X (Version None)
Quarter: 2012Q1

REPORT INFORMATION
  Report Type: 
  Country: None (occurrence: None)
  Receive Date: 20120113
  Receipt Date: 20120105
  Transmission Date: 20120608
  Serious: Yes (Hospitalization, Other)
  Sender: FDA-Public Use
  Company Number: US-AMGEN-USASP2012000779

PATIENT
  Age: 81 Year
  Sex: Female

DRUGS (1)
  1. ENBREL [Suspect]
     Indication: RHEUMATOID ARTHRITIS
     Dosage: 50 MG, QWK
     Dates: start: 20000501

REACTIONS (12)
  - FINGER DEFORMITY [None]
  - FALL [None]
  - FEMUR FRACTURE [None]
  - OEDEMA PERIPHERAL [None]
  - CONTUSION [None]
  - GAIT DISTURBANCE [None]
  - BREAST SWELLING [None]
  - JOINT SWELLING [None]
  - THROMBOSIS [None]
  - WEIGHT DECREASED [None]
  - JOINT DESTRUCTION [None]
  - SECRETION DISCHARGE [None]
